FAERS Safety Report 4324737-8 (Version None)
Quarter: 2004Q1

REPORT INFORMATION
  Report Type: 
  Country: None (occurrence: None)
  Receive Date: 20040326
  Receipt Date: 20040319
  Transmission Date: 20041129
  Serious: Yes (Disabling, Other)
  Sender: FDA-Public Use
  Company Number: WAES 0403GBR00220

PATIENT
  Age: 69 Year
  Sex: Female
  Weight: 84 kg

DRUGS (1)
  1. VIOXX [Suspect]
     Indication: MUSCLE STRAIN
     Route: 048
     Dates: start: 20031216, end: 20040228

REACTIONS (1)
  - DEEP VEIN THROMBOSIS [None]
